FAERS Safety Report 8920474 (Version 3)
Quarter: 2013Q1

REPORT INFORMATION
  Report Type: Spontaneous
  Country: JP (occurrence: JP)
  Receive Date: 20121121
  Receipt Date: 20130130
  Transmission Date: 20140127
  Serious: Yes (Hospitalization)
  Sender: FDA-Public Use
  Company Number: JP-AMGEN-JPNSP2012073992

PATIENT
  Age: 76 Year
  Sex: Male

DRUGS (10)
  1. RANMARK [Suspect]
     Indication: METASTASES TO BONE
     Route: 058
     Dates: start: 20120828, end: 20120925
  2. RANMARK [Suspect]
     Indication: PROSTATE CANCER
  3. ZOMETA [Suspect]
     Indication: METASTASES TO BONE
     Dosage: 4 MG, Q4WK
     Route: 042
     Dates: start: 20100118, end: 20120724
  4. ZOMETA [Suspect]
     Indication: PROSTATE CANCER
  5. DECADRON [Concomitant]
     Indication: PROSTATE CANCER
     Route: 048
  6. TAKEPRON OD [Concomitant]
     Route: 048
  7. ALFAROL [Concomitant]
     Route: 048
  8. CALCIUM LACTATE [Concomitant]
     Route: 048
  9. URIEF [Concomitant]
     Route: 048
  10. LOXONIN [Concomitant]
     Route: 048

REACTIONS (1)
  - Osteonecrosis of jaw [Recovering/Resolving]
